FAERS Safety Report 25921721 (Version 1)
Quarter: 2025Q4

REPORT INFORMATION
  Report Type: Spontaneous
  Country: EU (occurrence: EU)
  Receive Date: 20251014
  Receipt Date: 20251014
  Transmission Date: 20260117
  Serious: Yes (Hospitalization)
  Sender: ABBVIE
  Company Number: EU-ABBVIE-6499608

PATIENT
  Age: 29 Year

DRUGS (19)
  1. RINVOQ [Suspect]
     Active Substance: UPADACITINIB
     Indication: Crohn^s disease
     Dosage: LAST ADMIN DATE : DEC 2022
     Route: 048
     Dates: start: 20221212
  2. RINVOQ [Suspect]
     Active Substance: UPADACITINIB
     Indication: Crohn^s disease
     Route: 048
  3. RINVOQ [Suspect]
     Active Substance: UPADACITINIB
     Indication: Crohn^s disease
     Dosage: LAST ADMIN DATE: 2023
     Route: 048
     Dates: start: 202302
  4. RINVOQ [Suspect]
     Active Substance: UPADACITINIB
     Indication: Crohn^s disease
     Dosage: FIRST ADMIN DATE: 2023?LAST DOSE DATE: 2023
     Route: 048
  5. RINVOQ [Suspect]
     Active Substance: UPADACITINIB
     Indication: Crohn^s disease
     Dosage: FIRST ADMIN DATE: 2023?LAST DOSE DATE: 2023
     Route: 048
  6. SOLU-MEDROL [Concomitant]
     Active Substance: METHYLPREDNISOLONE SODIUM SUCCINATE
     Indication: Product used for unknown indication
     Dosage: SINGLE DOSE
     Route: 050
     Dates: start: 202301, end: 202301
  7. SOLU-MEDROL [Concomitant]
     Active Substance: METHYLPREDNISOLONE SODIUM SUCCINATE
     Indication: Product used for unknown indication
     Dates: start: 202312
  8. Lysine glutamate [Concomitant]
     Indication: Product used for unknown indication
     Dosage: HERBAL SUPPLEMENT
     Dates: start: 202305
  9. PREDNISOLONE [Concomitant]
     Active Substance: PREDNISOLONE
     Indication: Product used for unknown indication
     Dates: start: 202212, end: 202301
  10. PREDNISOLONE [Concomitant]
     Active Substance: PREDNISOLONE
     Indication: Product used for unknown indication
     Dosage: DOSE INCREASED
     Dates: start: 202301, end: 202301
  11. PREDNISOLONE [Concomitant]
     Active Substance: PREDNISOLONE
     Indication: Product used for unknown indication
     Dosage: LAST ADMIN DATE: 2023
     Dates: start: 202302
  12. PREDNISOLONE [Concomitant]
     Active Substance: PREDNISOLONE
     Indication: Product used for unknown indication
     Dates: start: 202305, end: 202311
  13. PREDNISOLONE [Concomitant]
     Active Substance: PREDNISOLONE
     Indication: Product used for unknown indication
     Dates: start: 202311, end: 202312
  14. PREDNISOLONE [Concomitant]
     Active Substance: PREDNISOLONE
     Indication: Product used for unknown indication
     Dates: start: 202312
  15. IRON [Concomitant]
     Active Substance: IRON
     Indication: Product used for unknown indication
     Dates: start: 202307
  16. TREMFYA [Concomitant]
     Active Substance: GUSELKUMAB
     Indication: Rheumatic disorder
     Dates: start: 202311
  17. PIPERACILLIN AND TAZOBACTAM [Concomitant]
     Active Substance: PIPERACILLIN SODIUM\TAZOBACTAM SODIUM
     Indication: Product used for unknown indication
     Dates: start: 202312
  18. ACYCLOVIR [Concomitant]
     Active Substance: ACYCLOVIR
     Indication: Product used for unknown indication
     Dates: start: 202212
  19. ACYCLOVIR [Concomitant]
     Active Substance: ACYCLOVIR
     Indication: Product used for unknown indication
     Route: 050
     Dates: start: 202312

REACTIONS (13)
  - Diarrhoea haemorrhagic [Unknown]
  - Upper respiratory tract infection [Unknown]
  - Pyrexia [Unknown]
  - C-reactive protein decreased [Unknown]
  - Hepatic enzyme increased [Unknown]
  - Arthropathy [Unknown]
  - Colitis [Unknown]
  - Polyarthritis [Unknown]
  - Haematochezia [Unknown]
  - Mucous stools [Unknown]
  - Therapeutic product effect incomplete [Unknown]
  - Herpes virus infection [Unknown]
  - Oral herpes [Unknown]

NARRATIVE: CASE EVENT DATE: 20221201
